FAERS Safety Report 9658034 (Version 1)
Quarter: 2013Q4

REPORT INFORMATION
  Report Type: Spontaneous
  Country: US (occurrence: US)
  Receive Date: 20131030
  Receipt Date: 20131030
  Transmission Date: 20140711
  Serious: Yes (Hospitalization)
  Sender: FDA-Public Use
  Company Number: US-ELI_LILLY_AND_COMPANY-US201310007860

PATIENT
  Sex: Male

DRUGS (9)
  1. INSULIN HUMAN [Suspect]
     Indication: TYPE 2 DIABETES MELLITUS
     Dosage: UNK
     Route: 058
  2. LOSARTAN [Concomitant]
     Indication: BLOOD PRESSURE ABNORMAL
  3. AMLODIPINE [Concomitant]
     Indication: BLOOD PRESSURE ABNORMAL
  4. GABAPENTIN [Concomitant]
     Indication: NEURALGIA
  5. ROXICODONE [Concomitant]
  6. NEXIUM [Concomitant]
  7. ALBUTEROL [Concomitant]
  8. PREDNISONE [Concomitant]
  9. EFFEXOR [Concomitant]

REACTIONS (3)
  - Influenza [Unknown]
  - Bronchitis [Unknown]
  - Wrong technique in drug usage process [Not Recovered/Not Resolved]
